FAERS Safety Report 24912624 (Version 1)
Quarter: 2025Q1

REPORT INFORMATION
  Report Type: Other
  Country: JO (occurrence: JO)
  Receive Date: 20250131
  Receipt Date: 20250131
  Transmission Date: 20250408
  Serious: Yes (Life-Threatening)
  Sender: B BRAUN
  Company Number: JO-B.Braun Medical Inc.-2170247

PATIENT
  Age: 5 Year
  Sex: Male

DRUGS (7)
  1. MANNITOL [Suspect]
     Active Substance: MANNITOL
     Indication: Brain oedema
  2. DEXAMETHASONE [Suspect]
     Active Substance: DEXAMETHASONE
  3. MEROPENEM [Concomitant]
     Active Substance: MEROPENEM
  4. METRONIDAZOLE [Concomitant]
     Active Substance: METRONIDAZOLE
  5. CEFTRIAXONE [Concomitant]
     Active Substance: CEFTRIAXONE
  6. VANCOMYCIN [Concomitant]
     Active Substance: VANCOMYCIN
  7. LASIX [Suspect]
     Active Substance: FUROSEMIDE

REACTIONS (1)
  - Drug ineffective [Unknown]
